FAERS Safety Report 19899213 (Version 1)
Quarter: 2021Q3

REPORT INFORMATION
  Report Type: Spontaneous
  Country: US (occurrence: US)
  Receive Date: 20210929
  Receipt Date: 20210929
  Transmission Date: 20211014
  Serious: Yes (Death)
  Sender: FDA-Public Use
  Company Number: None

PATIENT
  Sex: Female

DRUGS (6)
  1. COLCHICINE. [Concomitant]
     Active Substance: COLCHICINE
  2. DOXYCYCLINE HYCLATE. [Concomitant]
     Active Substance: DOXYCYCLINE HYCLATE
  3. EMVERM [Concomitant]
     Active Substance: MEBENDAZOLE
  4. TRAMADOL HCL [Concomitant]
     Active Substance: TRAMADOL HYDROCHLORIDE
  5. XGEVA [Suspect]
     Active Substance: DENOSUMAB
     Indication: BREAST NEOPLASM
     Dosage: ?          OTHER FREQUENCY:Q4 WEEKS;?
     Route: 058
  6. TRODELVY [Concomitant]
     Active Substance: SACITUZUMAB GOVITECAN-HZIY

REACTIONS (1)
  - Death [None]
